FAERS Safety Report 9400996 (Version 1)
Quarter: 2013Q3

REPORT INFORMATION
  Report Type: Spontaneous
  Country: US (occurrence: US)
  Receive Date: 20130715
  Receipt Date: 20130715
  Transmission Date: 20140515
  Serious: Yes (Death)
  Sender: FDA-Public Use
  Company Number: US-GLAXOSMITHKLINE-A1033173A

PATIENT
  Age: 53 Year
  Sex: Male

DRUGS (10)
  1. VOTRIENT [Suspect]
     Indication: PRODUCT USED FOR UNKNOWN INDICATION
     Dosage: 800MG PER DAY
     Route: 048
  2. LOMOTIL [Concomitant]
  3. METOPROLOL [Concomitant]
  4. ONDANSETRON [Concomitant]
  5. OMEPRAZOLE [Concomitant]
  6. VITAMIN B12 [Concomitant]
  7. IRON [Concomitant]
  8. HOMATROPINE + HYDROCODONE [Concomitant]
  9. PROTEIN POWDER [Concomitant]
  10. RENA-VITE [Concomitant]

REACTIONS (1)
  - Death [Fatal]
